FAERS Safety Report 5212084-1 (Version None)
Quarter: 2007Q1

REPORT INFORMATION
  Report Type: 
  Country: None (occurrence: None)
  Receive Date: 20070118
  Receipt Date: 20070109
  Transmission Date: 20070707
  Serious: Yes (Death, Hospitalization)
  Sender: FDA-Public Use
  Company Number: US-ROCHE-468299

PATIENT
  Age: 17 Year
  Sex: Male

DRUGS (1)
  1. ACCUTANE [Suspect]
     Indication: ACNE
     Route: 048
     Dates: start: 19950615

REACTIONS (5)
  - COMPLETED SUICIDE [None]
  - DEPRESSION [None]
  - DIARRHOEA [None]
  - HEPATIC CYST [None]
  - STREPTOCOCCAL INFECTION [None]
